FAERS Safety Report 8600454-0 (Version None)
Quarter: 2012Q3

REPORT INFORMATION
  Report Type: 
  Country: None (occurrence: None)
  Receive Date: 20120817
  Receipt Date: 20120810
  Transmission Date: 20120928
  Serious: Yes (Other)
  Sender: FDA-Public Use
  Company Number: GB-ELI_LILLY_AND_COMPANY-GB201206003523

PATIENT
  Age: 16 Year
  Sex: Male
  Weight: 56.4 kg

DRUGS (6)
  1. ZYPREXA [Suspect]
     Dosage: 2.5 MG, PRN
     Dates: start: 20120521, end: 20120523
  2. ZYPREXA [Suspect]
     Indication: PSYCHOTIC DISORDER
     Dosage: 15 MG, QD
     Dates: start: 20120522
  3. OLANZAPINE [Suspect]
     Indication: PSYCHOTIC DISORDER
     Dosage: 5 MG, QD
     Route: 048
     Dates: start: 20120524, end: 20120524
  4. ZYPREXA [Suspect]
     Dosage: 5 MG, PRN
     Route: 030
     Dates: start: 20120521, end: 20120523
  5. ZUCLOPENTHIXOL [Concomitant]
     Indication: PSYCHOTIC DISORDER
     Dosage: 50 MG, SINGLE
     Route: 030
     Dates: start: 20120523, end: 20120523
  6. LORAZEPAM [Concomitant]
     Dosage: 1 MG, UNK
     Route: 030

REACTIONS (4)
  - BLOOD THROMBIN INCREASED [None]
  - MYOCARDITIS [None]
  - PERICARDITIS [None]
  - PSYCHOTIC DISORDER [None]
